FAERS Safety Report 6211346-9 (Version None)
Quarter: 2009Q2

REPORT INFORMATION
  Report Type: 
  Country: None (occurrence: None)
  Receive Date: 20090602
  Receipt Date: 20090521
  Transmission Date: 20091009
  Serious: Yes (Hospitalization)
  Sender: FDA-Public Use
  Company Number: AU-CELGENEUS-008-21880-09051519

PATIENT
  Sex: Male

DRUGS (3)
  1. REVLIMID [Suspect]
     Indication: MULTIPLE MYELOMA
     Route: 048
     Dates: start: 20081023
  2. REVLIMID [Suspect]
     Route: 048
     Dates: start: 20081201, end: 20090326
  3. REVLIMID [Suspect]
     Route: 048
     Dates: start: 20090521

REACTIONS (3)
  - BASAL CELL CARCINOMA [None]
  - METASTASIS [None]
  - PNEUMONIA [None]
